FAERS Safety Report 20409431 (Version 1)
Quarter: 2022Q1

REPORT INFORMATION
  Report Type: Spontaneous
  Country: US (occurrence: US)
  Receive Date: 20220201
  Receipt Date: 20220201
  Transmission Date: 20220423
  Serious: Yes (Other)
  Sender: FDA-Public Use
  Company Number: US-GLAXOSMITHKLINE-US2022GSK017086

PATIENT
  Sex: Female

DRUGS (2)
  1. ZANTAC [Suspect]
     Active Substance: RANITIDINE HYDROCHLORIDE
     Indication: Hepatic enzyme increased
     Dosage: UNK UNK, QD
     Route: 065
     Dates: start: 199001, end: 201701
  2. ZANTAC [Suspect]
     Active Substance: RANITIDINE HYDROCHLORIDE
     Indication: Hepatic enzyme increased
     Dosage: UNK UNK, QD
     Route: 065
     Dates: start: 199001, end: 201701

REACTIONS (1)
  - Hepatic cancer [Unknown]
